FAERS Safety Report 9611963 (Version 2)
Quarter: 2013Q4

REPORT INFORMATION
  Report Type: Spontaneous
  Country: IL (occurrence: IL)
  Receive Date: 20131010
  Receipt Date: 20131101
  Transmission Date: 20140711
  Serious: Yes (Other)
  Sender: FDA-Public Use
  Company Number: IL-AMGEN-ISRSP2013070497

PATIENT
  Age: 50 Year
  Sex: Female
  Weight: 75 kg

DRUGS (3)
  1. XGEVA [Suspect]
     Indication: METASTASES TO BONE
     Dosage: 120 MG CYCLIC
     Route: 058
  2. XGEVA [Suspect]
     Dosage: 120MG CYCLIC
     Route: 058
  3. FEMARA [Concomitant]
     Indication: BREAST CANCER

REACTIONS (2)
  - Toothache [Unknown]
  - Osteonecrosis of jaw [Not Recovered/Not Resolved]
